FAERS Safety Report 24593386 (Version 1)
Quarter: 2024Q4

REPORT INFORMATION
  Report Type: Report from Study
  Country: US (occurrence: US)
  Receive Date: 20241108
  Receipt Date: 20241108
  Transmission Date: 20250115
  Serious: Yes (Other)
  Sender: UCB
  Company Number: US-UCBSA-2024056134

PATIENT
  Sex: Female
  Weight: 82.5 kg

DRUGS (6)
  1. CERTOLIZUMAB PEGOL [Suspect]
     Active Substance: CERTOLIZUMAB PEGOL
     Indication: Psoriasis
     Dosage: 400 MILLIGRAM, EV 2 WEEKS(QOW)
     Route: 058
     Dates: start: 20230102
  2. AMOXICILLIN [Concomitant]
     Active Substance: AMOXICILLIN
     Indication: Product used for unknown indication
     Dosage: 875 MILLIGRAM, 2X/DAY (BID), TAKE 1 TABLET EVERY 12 HOURS DAILY
     Dates: start: 20240209
  3. FERROUS SULFATE [Concomitant]
     Active Substance: FERROUS SULFATE
     Indication: Product used for unknown indication
     Dosage: 324 MILLIGRAM, 1 TAB PO Q DAY
     Route: 048
     Dates: start: 20230802
  4. KETOCONAZOLE [Concomitant]
     Active Substance: KETOCONAZOLE
     Indication: Product used for unknown indication
     Dosage: UNK UNK, ONCE DAILY (QD), 2 % E;XTERNAL SHAMPOO
     Dates: start: 20221215
  5. MICROGESTIN FE 1.5/30 [Concomitant]
     Active Substance: ETHINYL ESTRADIOL\NORETHINDRONE ACETATE
     Indication: Product used for unknown indication
     Dosage: ONE ORAL TABLET, ONCE DAILY FOR 21 DAYS THEN FREE FOR SEVEN DAYS;
     Route: 048
     Dates: start: 20221118
  6. VITAMIN C [Concomitant]
     Active Substance: ASCORBIC ACID
     Indication: Product used for unknown indication
     Dosage: 500 MILLIGRAM, 1 PO Q DAY
     Route: 048
     Dates: start: 20230802

REACTIONS (26)
  - Pneumonia [Unknown]
  - Conductive deafness [Unknown]
  - Otitis media [Unknown]
  - Maternal exposure before pregnancy [Unknown]
  - Maternal exposure during pregnancy [Unknown]
  - Psoriasis [Unknown]
  - Amenorrhoea [Unknown]
  - Ear pain [Unknown]
  - Sinusitis [Unknown]
  - Sinus congestion [Unknown]
  - Pharyngitis [Unknown]
  - Seasonal allergy [Unknown]
  - Bronchitis [Unknown]
  - COVID-19 [Unknown]
  - Eustachian tube dysfunction [Unknown]
  - Immunisation [Unknown]
  - Contraception [Unknown]
  - Fatigue [Unknown]
  - Pyrexia [Unknown]
  - Gastrooesophageal reflux disease [Unknown]
  - Hand-foot-and-mouth disease [Unknown]
  - Reflux laryngitis [Unknown]
  - Lentigo [Unknown]
  - Orthostatic hypotension [Unknown]
  - Therapy interrupted [Unknown]
  - Insurance issue [Unknown]
